FAERS Safety Report 8159158-3 (Version None)
Quarter: 2012Q1

REPORT INFORMATION
  Report Type: 
  Country: None (occurrence: None)
  Receive Date: 20120216
  Receipt Date: 20120210
  Transmission Date: 20120608
  Serious: Yes (Hospitalization, Other)
  Sender: FDA-Public Use
  Company Number: 2011SP019419

PATIENT
  Age: 18 Year
  Sex: Female
  Weight: 68.0396 kg

DRUGS (5)
  1. TRAZODONE HCL [Concomitant]
  2. PHENTERMINE [Suspect]
     Indication: PRODUCT USED FOR UNKNOWN INDICATION
  3. NUVARING [Suspect]
     Indication: CONTRACEPTION
     Dates: end: 20090519
  4. WELLBUTRIN [Suspect]
     Indication: DEPRESSION
  5. CITALOPRAM HYDROBROMIDE [Concomitant]

REACTIONS (17)
  - MYOCARDIAL ISCHAEMIA [None]
  - PHARYNGITIS [None]
  - PULMONARY EMBOLISM [None]
  - OLIGOMENORRHOEA [None]
  - UPPER RESPIRATORY TRACT INFECTION [None]
  - WEIGHT INCREASED [None]
  - ANXIETY [None]
  - ASTHMA [None]
  - FATIGUE [None]
  - DYSFUNCTIONAL UTERINE BLEEDING [None]
  - PRESYNCOPE [None]
  - NASOPHARYNGITIS [None]
  - HEPATIC STEATOSIS [None]
  - DRUG LEVEL BELOW THERAPEUTIC [None]
  - BRONCHITIS [None]
  - BACK PAIN [None]
  - CHLAMYDIA TEST POSITIVE [None]
